FAERS Safety Report 11088543 (Version 3)
Quarter: 2015Q3

REPORT INFORMATION
  Report Type: Spontaneous
  Country: JP (occurrence: JP)
  Receive Date: 20150504
  Receipt Date: 20150702
  Transmission Date: 20151125
  Serious: Yes (Hospitalization, Other)
  Sender: FDA-Public Use
  Company Number: JP-009507513-1504JPN017948

PATIENT
  Age: 28 Year
  Sex: Female
  Weight: 50 kg

DRUGS (8)
  1. ESLAX INTRAVENOUS 25MG/2.5ML [Suspect]
     Active Substance: ROCURONIUM BROMIDE
     Indication: INDUCTION OF ANAESTHESIA
  2. DIPRIVAN [Suspect]
     Active Substance: PROPOFOL
     Indication: INDUCTION OF ANAESTHESIA
     Dosage: 70 MG,DIVIDED DOSE FREQUENCY UNKNOWN
     Route: 042
     Dates: start: 20150416, end: 20150416
  3. FENTANYL. [Concomitant]
     Active Substance: FENTANYL
     Indication: INDUCTION OF ANAESTHESIA
     Dosage: 50 MICROGRAM, DIVIDED DOSE FREQUENCY UNKNOWN
     Route: 051
     Dates: start: 20150416, end: 20150416
  4. BRIDION INTRAVENOUS 200MG [Suspect]
     Active Substance: SUGAMMADEX
     Indication: NEUROMUSCULAR BLOCKADE REVERSAL
     Dosage: 100 MG, QD
     Route: 042
     Dates: start: 20150416, end: 20150416
  5. ESLAX INTRAVENOUS 25MG/2.5ML [Suspect]
     Active Substance: ROCURONIUM BROMIDE
     Indication: HYPOTONIA
  6. ESLAX INTRAVENOUS 25MG/2.5ML [Suspect]
     Active Substance: ROCURONIUM BROMIDE
     Indication: NEUROMUSCULAR BLOCKING THERAPY
     Dosage: 40 MG, DIVIDED DOSE FREQUENCY UNKNOWN
     Route: 042
     Dates: start: 20140416, end: 20150416
  7. ROPION [Suspect]
     Active Substance: FLURBIPROFEN AXETIL
     Indication: ANALGESIC THERAPY
     Dosage: 50 MG, QD
     Route: 042
     Dates: start: 20150416, end: 20150416
  8. SEVOFLURANE. [Concomitant]
     Active Substance: SEVOFLURANE
     Indication: INDUCTION OF ANAESTHESIA
     Dosage: DAILY DOSE UNKNOWN
     Route: 055
     Dates: start: 20150416, end: 20150416

REACTIONS (4)
  - Eyelid oedema [Recovering/Resolving]
  - Swelling face [Recovering/Resolving]
  - Erythema [Recovered/Resolved]
  - Flushing [Recovering/Resolving]

NARRATIVE: CASE EVENT DATE: 20150416
